FAERS Safety Report 16437624 (Version 2)
Quarter: 2019Q4

REPORT INFORMATION
  Report Type: Spontaneous
  Country: US (occurrence: US)
  Receive Date: 20190615
  Receipt Date: 20191226
  Transmission Date: 20200122
  Serious: No
  Sender: FDA-Public Use
  Company Number: US-TEVA-2019-US-1055970

PATIENT
  Sex: Female

DRUGS (15)
  1. BUPRENORPHINE. [Suspect]
     Active Substance: BUPRENORPHINE
     Indication: MYALGIA
     Dosage: 15 MCG
     Route: 062
     Dates: start: 201902, end: 201903
  2. FLUTICASONE FUROATE [Concomitant]
     Active Substance: FLUTICASONE FUROATE
     Dosage: 27.5 MCG
  3. BUPRENORPHINE. [Suspect]
     Active Substance: BUPRENORPHINE
     Indication: BONE PAIN
  4. BUPRENORPHINE. [Suspect]
     Active Substance: BUPRENORPHINE
     Indication: WOUND
  5. GABAPENTIN. [Concomitant]
     Active Substance: GABAPENTIN
  6. LIDOCAINE. [Concomitant]
     Active Substance: LIDOCAINE
     Route: 062
  7. ACETAMINOPHEN. [Concomitant]
     Active Substance: ACETAMINOPHEN
     Dosage: 500 MG
  8. PRESERVISION AREDS [Concomitant]
     Active Substance: MINERALS\VITAMINS
     Dosage: DAILY
  9. ASPIRIN EC [Concomitant]
     Active Substance: ASPIRIN
  10. AMLODIPINE BESYLATE. [Concomitant]
     Active Substance: AMLODIPINE BESYLATE
     Dosage: 2.5 MG
  11. VOLTAREN [Concomitant]
     Active Substance: DICLOFENAC SODIUM
  12. MULTIVITAMIN [Concomitant]
     Active Substance: VITAMINS
     Dosage: DAILY
  13. GLIPIZIDE. [Concomitant]
     Active Substance: GLIPIZIDE
     Dosage: 2.5 MG DAILY
  14. BUPRENORPHINE. [Suspect]
     Active Substance: BUPRENORPHINE
     Indication: RASH
  15. ROPINIROLE HCL [Concomitant]
     Active Substance: ROPINIROLE HYDROCHLORIDE
     Dosage: 0.25 MG

REACTIONS (4)
  - Blister [Not Recovered/Not Resolved]
  - Pruritus [Not Recovered/Not Resolved]
  - Application site swelling [Not Recovered/Not Resolved]
  - Therapeutic product effect decreased [Unknown]
